FAERS Safety Report 15819759 (Version 1)
Quarter: 2019Q1

REPORT INFORMATION
  Report Type: Spontaneous
  Country: US (occurrence: US)
  Receive Date: 20190114
  Receipt Date: 20190114
  Transmission Date: 20190417
  Serious: No
  Sender: FDA-Public Use
  Company Number: US-AMGEN-USASP2019002903

PATIENT
  Sex: Female
  Weight: 89.8 kg

DRUGS (5)
  1. POTASSIUM [Concomitant]
     Active Substance: POTASSIUM
  2. XGEVA [Suspect]
     Active Substance: DENOSUMAB
     Indication: PRODUCT USED FOR UNKNOWN INDICATION
     Dosage: UNK
     Route: 065
  3. VIACTIV [Concomitant]
     Active Substance: CALCIUM\VITAMIN D\VITAMIN K5
  4. FISH OIL [Concomitant]
     Active Substance: FISH OIL
  5. IBRANCE [Suspect]
     Active Substance: PALBOCICLIB
     Indication: BREAST CANCER METASTATIC
     Dosage: 100 MG, D 1-21 Q 28 DAYS
     Route: 048
     Dates: start: 20160726

REACTIONS (9)
  - Fatigue [Unknown]
  - Pain in extremity [Unknown]
  - Weight increased [Unknown]
  - Blood triglycerides increased [Unknown]
  - Stomatitis [Unknown]
  - Dental caries [Unknown]
  - Dyspnoea [Unknown]
  - Dysphagia [Unknown]
  - Blood potassium decreased [Unknown]
